FAERS Safety Report 19963748 (Version 1)
Quarter: 2021Q4

REPORT INFORMATION
  Report Type: Spontaneous
  Country: US (occurrence: US)
  Receive Date: 20211014
  Receipt Date: 20211014
  Transmission Date: 20220303
  Serious: Yes (Other)
  Sender: FDA-Public Use
  Company Number: None

PATIENT
  Age: 57 Year
  Sex: Male

DRUGS (1)
  1. ABIRATERONE [Suspect]
     Active Substance: ABIRATERONE
     Route: 048

REACTIONS (4)
  - Gastrointestinal disorder [None]
  - Transfusion [None]
  - Transfusion [None]
  - Platelet transfusion [None]

NARRATIVE: CASE EVENT DATE: 20210930
